FAERS Safety Report 17033332 (Version 10)
Quarter: 2020Q4

REPORT INFORMATION
  Report Type: Spontaneous
  Country: US (occurrence: US)
  Receive Date: 20191114
  Receipt Date: 20201201
  Transmission Date: 20210113
  Serious: No
  Sender: FDA-Public Use
  Company Number: US-SA-2019SA283219

PATIENT

DRUGS (1)
  1. KEVZARA [Suspect]
     Active Substance: SARILUMAB
     Indication: PRODUCT USED FOR UNKNOWN INDICATION
     Dosage: 200 MG, QOW
     Route: 058
     Dates: start: 201908

REACTIONS (12)
  - Musculoskeletal chest pain [Unknown]
  - Dyspepsia [Unknown]
  - Pruritus [Unknown]
  - Sinusitis [Unknown]
  - Nasal congestion [Unknown]
  - Injection site swelling [Unknown]
  - Back pain [Unknown]
  - Skin irritation [Unknown]
  - Rash pruritic [Unknown]
  - Injection site pruritus [Unknown]
  - Abdominal discomfort [Unknown]
  - Headache [Unknown]

NARRATIVE: CASE EVENT DATE: 2019
